FAERS Safety Report 15122621 (Version 1)
Quarter: 2018Q3

REPORT INFORMATION
  Report Type: Spontaneous
  Country: US (occurrence: US)
  Receive Date: 20180613
  Receipt Date: 20180613
  Transmission Date: 20181010
  Serious: Yes (Life-Threatening, Hospitalization)
  Sender: FDA-Public Use
  Company Number: None

PATIENT
  Age: 68 Year
  Sex: Male
  Weight: 102.06 kg

DRUGS (2)
  1. LIDOCAINE. [Suspect]
     Active Substance: LIDOCAINE
     Indication: MUSCULOSKELETAL PAIN
     Route: 030
     Dates: start: 20180425, end: 20180425
  2. TRIAMCINOLONE [Suspect]
     Active Substance: TRIAMCINOLONE
     Indication: MUSCULOSKELETAL PAIN
     Route: 030
     Dates: start: 20180425, end: 20180425

REACTIONS (6)
  - Dizziness [None]
  - Syncope [None]
  - Anaphylactic reaction [None]
  - Nausea [None]
  - Angioedema [None]
  - Urinary incontinence [None]

NARRATIVE: CASE EVENT DATE: 20180425
